FAERS Safety Report 19619564 (Version 1)
Quarter: 2021Q3

REPORT INFORMATION
  Report Type: Spontaneous
  Country: IT (occurrence: IT)
  Receive Date: 20210728
  Receipt Date: 20210728
  Transmission Date: 20211014
  Serious: Yes (Life-Threatening, Other)
  Sender: FDA-Public Use
  Company Number: IT-HIKMA PHARMACEUTICALS USA INC.-IT-H14001-21-03425

PATIENT

DRUGS (2)
  1. TOSEDOSTAT [Suspect]
     Active Substance: TOSEDOSTAT
     Indication: ACUTE MYELOID LEUKAEMIA
     Dosage: DAY 1 TO 240
     Route: 048
  2. CYTARABINE. [Suspect]
     Active Substance: CYTARABINE
     Indication: ACUTE MYELOID LEUKAEMIA
     Dosage: DAY 1 TO 10
     Route: 058

REACTIONS (1)
  - Organising pneumonia [Unknown]
